FAERS Safety Report 5465249-8 (Version None)
Quarter: 2007Q3

REPORT INFORMATION
  Report Type: 
  Country: None (occurrence: None)
  Receive Date: 20070924
  Receipt Date: 20070912
  Transmission Date: 20080115
  Serious: Yes (Hospitalization)
  Sender: FDA-Public Use
  Company Number: PHHO2007MX15297

PATIENT
  Age: 85 Year
  Sex: Male

DRUGS (1)
  1. STALEVO 100 [Suspect]
     Indication: PARKINSON'S DISEASE
     Dosage: 3 TABLETS (150/37.5/200 MG) PER DAY.
     Route: 048
     Dates: start: 20060301

REACTIONS (4)
  - BRONCHOSPASM [None]
  - DYSPHAGIA [None]
  - INCREASED UPPER AIRWAY SECRETION [None]
  - INFLAMMATION [None]
